FAERS Safety Report 5248034-1 (Version None)
Quarter: 2007Q1

REPORT INFORMATION
  Report Type: 
  Country: None (occurrence: None)
  Receive Date: 20070227
  Receipt Date: 20070221
  Transmission Date: 20070707
  Serious: Yes (Death)
  Sender: FDA-Public Use
  Company Number: ES-SANOFI-SYNTHELABO-A01200506425

PATIENT
  Age: 51 Year
  Sex: Male

DRUGS (4)
  1. HYDROXYUREA [Concomitant]
  2. PREDNISONE [Concomitant]
  3. ALLOPURINOL SODIUM [Concomitant]
  4. FASTURTEC [Suspect]
     Indication: HYPERURICAEMIA
     Dosage: UNK
     Route: 042

REACTIONS (1)
  - BRONCHOSPASM [None]
